FAERS Safety Report 14019755 (Version 1)
Quarter: 2017Q3

REPORT INFORMATION
  Report Type: Spontaneous
  Country: MY (occurrence: MY)
  Receive Date: 20170928
  Receipt Date: 20170928
  Transmission Date: 20171128
  Serious: Yes (Other)
  Sender: FDA-Public Use
  Company Number: MY-PFIZER INC-2017413830

PATIENT
  Age: 55 Year
  Sex: Female
  Weight: 43.8 kg

DRUGS (2)
  1. ANZATAX (PACLITAXEL) [Suspect]
     Active Substance: PACLITAXEL
     Dosage: UNK, CYCLIC
     Route: 041
  2. CARBOPLATIN. [Concomitant]
     Active Substance: CARBOPLATIN
     Dosage: UNK, CYCLIC

REACTIONS (6)
  - Loss of consciousness [Recovered/Resolved]
  - Ventricular extrasystoles [Unknown]
  - Blood pressure increased [Unknown]
  - Vomiting [Unknown]
  - Tachycardia [Unknown]
  - Dyspnoea [Unknown]
